FAERS Safety Report 9303030 (Version 1)
Quarter: 2013Q2

REPORT INFORMATION
  Report Type: Spontaneous
  Country: GB (occurrence: None)
  Receive Date: 20130516
  Receipt Date: 20130516
  Transmission Date: 20140414
  Serious: Yes (Life-Threatening, Hospitalization, Other)
  Sender: FDA-Public Use
  Company Number: AUR-APL-2013-03779

PATIENT
  Age: 73 Year
  Sex: Male
  Weight: 85 kg

DRUGS (1)
  1. CITALOPRAM (CITALOPRAM) [Suspect]
     Indication: MAJOR DEPRESSION
     Dosage: 10 MG, 1 IN 1 D, ORAL
     Route: 048
     Dates: start: 20111114, end: 20130311

REACTIONS (10)
  - Haematemesis [None]
  - Oesophagitis [None]
  - Candida infection [None]
  - Skin exfoliation [None]
  - Pemphigus [None]
  - Tongue ulceration [None]
  - Swollen tongue [None]
  - Erythema [None]
  - Abscess [None]
  - Swelling face [None]
